FAERS Safety Report 7193635-7 (Version None)
Quarter: 2010Q4

REPORT INFORMATION
  Report Type: 
  Country: None (occurrence: None)
  Receive Date: 20101223
  Receipt Date: 20101217
  Transmission Date: 20110411
  Serious: Yes (Hospitalization)
  Sender: FDA-Public Use
  Company Number: JP-NOVOPROD-319258

PATIENT
  Sex: Female
  Weight: 50.2 kg

DRUGS (6)
  1. IDEG FLEXPEN [Suspect]
     Indication: TYPE 1 DIABETES MELLITUS
     Dosage: 5 IU, QD
     Route: 058
     Dates: start: 20100331, end: 20100929
  2. IDEG FLEXPEN [Suspect]
     Dosage: 5 IU, QD
     Route: 058
     Dates: start: 20101007
  3. NOVORAPID FLEXPEN [Suspect]
     Indication: TYPE 1 DIABETES MELLITUS
     Dosage: 29 IU, QD
     Route: 058
     Dates: start: 20100331, end: 20101006
  4. NOVORAPID FLEXPEN [Suspect]
     Dosage: 24 IU, QD
     Route: 058
     Dates: start: 20101007
  5. INSULATARD FLEXPEN HM(GE) [Suspect]
     Indication: TYPE 1 DIABETES MELLITUS
     Dosage: 5 IU, QD
     Route: 058
     Dates: start: 20100930, end: 20101006
  6. SELTOUCH [Concomitant]
     Indication: MUSCLE FATIGUE
     Dosage: 1 SHEET, EXTERNAL
     Dates: start: 20100519

REACTIONS (1)
  - MUSCLE SPASMS [None]
